FAERS Safety Report 8530092-X (Version None)
Quarter: 2012Q3

REPORT INFORMATION
  Report Type: 
  Country: None (occurrence: None)
  Receive Date: 20120711
  Receipt Date: 20120626
  Transmission Date: 20120928
  Serious: Yes (Other)
  Sender: FDA-Public Use
  Company Number: TPA2012A04176

PATIENT
  Age: 63 Year
  Sex: Female
  Weight: 72.5755 kg

DRUGS (11)
  1. VENLAFAXINE HYDROCHLORIDE [Suspect]
     Indication: ANXIETY
     Dosage: 150 MG, 21 IN D, ORAL
     Route: 048
  2. VENLAFAXINE HYDROCHLORIDE [Suspect]
     Indication: NERVOUS SYSTEM DISORDER
     Dosage: 150 MG, 21 IN D, ORAL
     Route: 048
  3. VENLAFAXINE HYDROCHLORIDE [Suspect]
     Indication: PANIC ATTACK
     Dosage: 150 MG, 21 IN D, ORAL
     Route: 048
  4. VENLAFAXINE HYDROCHLORIDE [Suspect]
     Indication: RELAXATION THERAPY
     Dosage: 150 MG, 21 IN D, ORAL
     Route: 048
  5. VENLAFAXINE HYDROCHLORIDE [Suspect]
     Indication: DEPRESSION
     Dosage: 150 MG, 21 IN D, ORAL
     Route: 048
  6. VENLAFAXINE HYDROCHLORIDE [Suspect]
     Indication: SEDATIVE THERAPY
     Dosage: 150 MG, 21 IN D, ORAL
     Route: 048
  7. VENLAFAXINE HYDROCHLORIDE [Suspect]
     Indication: BIPOLAR DISORDER
     Dosage: 150 MG, 21 IN D, ORAL
     Route: 048
  8. DEXILANT [Suspect]
     Indication: GASTROOESOPHAGEAL REFLUX DISEASE
     Dosage: 60 MG, 2 IN 1 D, ORAL; 60 MG, 1 IN 1 D
     Route: 048
  9. DEXILANT [Suspect]
     Indication: OESOPHAGEAL DISORDER
     Dosage: 60 MG, 2 IN 1 D, ORAL; 60 MG, 1 IN 1 D
     Route: 048
  10. NEXIUM [Suspect]
  11. UNSPECIFIED MEDICATIONS (ALL OTHER THERAPEUTIC PRODUCTS) [Concomitant]

REACTIONS (6)
  - NASOPHARYNGITIS [None]
  - LUNG DISORDER [None]
  - OROPHARYNGEAL PAIN [None]
  - EAR PAIN [None]
  - ULCER [None]
  - HAEMORRHAGE [None]
